FAERS Safety Report 8177554-5 (Version None)
Quarter: 2012Q1

REPORT INFORMATION
  Report Type: 
  Country: None (occurrence: None)
  Receive Date: 20120301
  Receipt Date: 20120220
  Transmission Date: 20120608
  Serious: Yes (Hospitalization, Other)
  Sender: FDA-Public Use
  Company Number: US-BRISTOL-MYERS SQUIBB COMPANY-16407694

PATIENT
  Age: 66 Year
  Sex: Male

DRUGS (2)
  1. EVEROLIMUS [Suspect]
     Indication: CHRONIC MYELOID LEUKAEMIA
     Dosage: INTER ON 03DEC09,RESTARTED ON 09DEC09,7JAN10
     Dates: start: 20091010
  2. DASATINIB [Suspect]
     Indication: CHRONIC MYELOID LEUKAEMIA
     Dosage: INTER ON 07JAN10,RESTARTED ON 27JAN10
     Dates: start: 20070401

REACTIONS (4)
  - RENAL FAILURE ACUTE [None]
  - METASTATIC RENAL CELL CARCINOMA [None]
  - PNEUMONITIS [None]
  - PLEURAL EFFUSION [None]
